FAERS Safety Report 19441384 (Version 1)
Quarter: 2021Q2

REPORT INFORMATION
  Report Type: Spontaneous
  Country: JP (occurrence: JP)
  Receive Date: 20210621
  Receipt Date: 20210621
  Transmission Date: 20210717
  Serious: Yes (Other)
  Sender: FDA-Public Use
  Company Number: JP-PFIZER INC-2021673249

PATIENT
  Age: 9 Decade
  Sex: Female

DRUGS (1)
  1. LORA?PITA 2MG [Suspect]
     Active Substance: LORAZEPAM
     Indication: STATUS EPILEPTICUS
     Dosage: 2 MG, DAILY
     Route: 042

REACTIONS (2)
  - Respiratory rate decreased [Recovered/Resolved]
  - Respiratory depression [Recovered/Resolved]
